FAERS Safety Report 7469203-6 (Version None)
Quarter: 2011Q2

REPORT INFORMATION
  Report Type: 
  Country: None (occurrence: None)
  Receive Date: 20110510
  Receipt Date: 20110429
  Transmission Date: 20111010
  Serious: Yes (Hospitalization)
  Sender: FDA-Public Use
  Company Number: US-EISAI INC-E7389-01234-CLI-US

PATIENT
  Sex: Female
  Weight: 102 kg

DRUGS (1)
  1. EPIRUBICIN HYDROCHLORIDE [Suspect]
     Route: 041
     Dates: start: 20110425

REACTIONS (2)
  - URINARY TRACT INFECTION [None]
  - BRONCHITIS [None]
